FAERS Safety Report 22836501 (Version 13)
Quarter: 2025Q1

REPORT INFORMATION
  Report Type: Report from Study
  Country: CO (occurrence: CO)
  Receive Date: 20230818
  Receipt Date: 20250207
  Transmission Date: 20250409
  Serious: Yes (Other)
  Sender: TAKEDA
  Company Number: CO-TAKEDA-2023TUS080473

PATIENT
  Age: 35 Year
  Sex: Female
  Weight: 99 kg

DRUGS (1)
  1. VEDOLIZUMAB [Suspect]
     Active Substance: VEDOLIZUMAB
     Indication: Crohn^s disease
     Dates: start: 20230714, end: 20241219

REACTIONS (23)
  - Haematochezia [Not Recovered/Not Resolved]
  - Body height increased [Unknown]
  - Weight decreased [Unknown]
  - Poor venous access [Unknown]
  - Malaise [Not Recovered/Not Resolved]
  - Flank pain [Unknown]
  - Incorrect dose administered [Unknown]
  - Weight increased [Unknown]
  - Diarrhoea [Not Recovered/Not Resolved]
  - Infusion site extravasation [Unknown]
  - Depression [Unknown]
  - Oedema peripheral [Unknown]
  - Inflammation [Unknown]
  - Face oedema [Unknown]
  - Disturbance in attention [Unknown]
  - Body height decreased [Unknown]
  - Dizziness [Unknown]
  - Abdominal pain [Not Recovered/Not Resolved]
  - Blood pressure increased [Unknown]
  - Decreased appetite [Unknown]
  - Vomiting [Not Recovered/Not Resolved]
  - Headache [Unknown]
  - Pyrexia [Not Recovered/Not Resolved]

NARRATIVE: CASE EVENT DATE: 20230812
